FAERS Safety Report 8591958-8 (Version None)
Quarter: 2012Q3

REPORT INFORMATION
  Report Type: 
  Country: None (occurrence: None)
  Receive Date: 20120814
  Receipt Date: 20120807
  Transmission Date: 20120928
  Serious: Yes (Death, Other)
  Sender: FDA-Public Use
  Company Number: JP-JNJFOC-20120805498

PATIENT
  Age: 28 Year
  Sex: Female

DRUGS (6)
  1. BIPERIDEN HYDROCHLORIDE TAB [Concomitant]
     Route: 065
  2. ABILIFY [Concomitant]
     Route: 048
     Dates: start: 20110106, end: 20110222
  3. PHENOBARBITAL TAB [Concomitant]
     Route: 048
  4. INVEGA [Suspect]
     Indication: SCHIZOPHRENIA
     Route: 048
     Dates: start: 20110203, end: 20110222
  5. RISPERDAL [Suspect]
     Indication: PRODUCT USED FOR UNKNOWN INDICATION
     Route: 048
     Dates: start: 20101001, end: 20110111
  6. ZOLPIDEM [Concomitant]
     Route: 048

REACTIONS (2)
  - COMPLETED SUICIDE [None]
  - AKATHISIA [None]
